FAERS Safety Report 12766334 (Version 1)
Quarter: 2016Q3

REPORT INFORMATION
  Report Type: Spontaneous
  Country: US (occurrence: US)
  Receive Date: 20160921
  Receipt Date: 20160921
  Transmission Date: 20161109
  Serious: No
  Sender: FDA-Public Use
  Company Number: US-B.I. PHARMACEUTICALS,INC./RIDGEFIELD-2016-BI-46084BP

PATIENT
  Age: 69 Year
  Sex: Male
  Weight: 77.11 kg

DRUGS (1)
  1. OFEV [Suspect]
     Active Substance: NINTEDANIB
     Indication: PULMONARY FIBROSIS
     Route: 065
     Dates: start: 201508

REACTIONS (2)
  - Unevaluable event [Unknown]
  - Cataract operation [Unknown]

NARRATIVE: CASE EVENT DATE: 20160712
